FAERS Safety Report 8933248 (Version 1)
Quarter: 2012Q4

REPORT INFORMATION
  Report Type: 
  Country: BR (occurrence: BR)
  Receive Date: 20121129
  Receipt Date: 20121129
  Transmission Date: 20130627
  Serious: Yes (Other)
  Sender: FDA-Public Use
  Company Number: PHHY2012BR108226

PATIENT
  Sex: Female
  Weight: 54 kg

DRUGS (3)
  1. MIACALCIC [Suspect]
     Indication: OSTEOPOROSIS
     Dosage: 1 DF, at sleep time
     Route: 045
  2. MIACALCIC [Suspect]
     Dosage: 1 DF, UNK
     Route: 045
  3. CHOCHOTHYTOL [Concomitant]
     Dosage: 10 ml, once a day
     Route: 048

REACTIONS (3)
  - Feeling of despair [Not Recovered/Not Resolved]
  - Condition aggravated [Not Recovered/Not Resolved]
  - Osteoporosis [Not Recovered/Not Resolved]
